FAERS Safety Report 16873557 (Version 1)
Quarter: 2019Q4

REPORT INFORMATION
  Report Type: Spontaneous
  Country: US (occurrence: US)
  Receive Date: 20191001
  Receipt Date: 20191001
  Transmission Date: 20200122
  Serious: Yes (Other)
  Sender: FDA-Public Use
  Company Number: US-ALVOGEN-2019-ALVOGEN-101485

PATIENT
  Age: 48 Year
  Sex: Female

DRUGS (4)
  1. FLUDARABINE [Suspect]
     Active Substance: FLUDARABINE PHOSPHATE
     Indication: CUTANEOUS T-CELL LYMPHOMA REFRACTORY
  2. CYCLOSPORINE. [Concomitant]
     Active Substance: CYCLOSPORINE
     Indication: PROPHYLAXIS AGAINST GRAFT VERSUS HOST DISEASE
  3. MELPHALAN. [Suspect]
     Active Substance: MELPHALAN
     Indication: CUTANEOUS T-CELL LYMPHOMA REFRACTORY
  4. METHOTREXATE. [Concomitant]
     Active Substance: METHOTREXATE
     Indication: PROPHYLAXIS AGAINST GRAFT VERSUS HOST DISEASE

REACTIONS (4)
  - Myocarditis [Unknown]
  - Cutaneous T-cell lymphoma refractory [Unknown]
  - Disease progression [Unknown]
  - Cardiac failure [Unknown]
